FAERS Safety Report 8327474-8 (Version None)
Quarter: 2012Q2

REPORT INFORMATION
  Report Type: 
  Country: None (occurrence: None)
  Receive Date: 20120423
  Receipt Date: 20120406
  Transmission Date: 20120825
  Serious: Yes (Other)
  Sender: FDA-Public Use
  Company Number: 2010026350

PATIENT
  Sex: Male
  Weight: 97.5234 kg

DRUGS (21)
  1. CELLCEPT [Concomitant]
  2. ZEMAIRA [Suspect]
     Indication: ALPHA-1 ANTI-TRYPSIN DEFICIENCY
  3. ZEMAIRA [Suspect]
     Indication: ALPHA-1 ANTI-TRYPSIN DEFICIENCY
     Dosage: 80 MG/KG 1X/WEEK, 990 MG VIAL INTRAVENOUS (NOT OTHERWISE SPECIFIED)
     Route: 042
  4. FOLIC ACID [Concomitant]
  5. PROTONIX [Concomitant]
  6. AMITRIPTYLINE HCL (AMITRIPTYLINE) [Concomitant]
  7. OXYCODONE HCL AND ACETAMINOPHEN [Concomitant]
  8. LANTIS (INSULIN GLARGINE) [Concomitant]
  9. BL FERROUS SU (FERROUS SULFATE) [Concomitant]
  10. PROGRAFF (TACROLIMUS) [Concomitant]
  11. PROCHLORPERAZINE [Concomitant]
  12. ZEMAIRA [Suspect]
     Indication: ALPHA-1 ANTI-TRYPSIN DEFICIENCY
  13. PREDNISONE [Concomitant]
  14. CALCIUM 600 D (CALCIUM WITH VITAMIN D) [Concomitant]
  15. ACTOS [Concomitant]
  16. HUMALOG [Concomitant]
  17. ZEMAIRA [Suspect]
     Indication: ALPHA-1 ANTI-TRYPSIN DEFICIENCY
     Dosage: 80 MG/KG 1X/WEEK, 80 MG/KG WEEKLY 15 MINUTE TOTAL INFUSION TIME INTRAVENOUS  (NOT OTHERWISE SPECIFIE
     Route: 042
     Dates: start: 20090520
  18. LISINOPRIL [Concomitant]
  19. SODIUM BICARBONATE [Concomitant]
  20. GLIPIZIDE [Concomitant]
  21. SIMVASTATIN [Concomitant]

REACTIONS (5)
  - INFUSION RELATED REACTION [None]
  - NAUSEA [None]
  - PERITONEAL DIALYSIS [None]
  - VOMITING [None]
  - HEADACHE [None]
